FAERS Safety Report 12379015 (Version 1)
Quarter: 2016Q2

REPORT INFORMATION
  Report Type: Report from Study
  Country: RO (occurrence: RO)
  Receive Date: 20160517
  Receipt Date: 20160517
  Transmission Date: 20160815
  Serious: Yes (Hospitalization)
  Sender: FDA-Public Use
  Company Number: RO-ABBVIE-16P-135-1626041-00

PATIENT
  Age: 61 Year
  Sex: Female

DRUGS (3)
  1. RIBAVIRIN. [Concomitant]
     Active Substance: RIBAVIRIN
     Indication: HEPATIC CIRRHOSIS
     Route: 048
     Dates: start: 20160414, end: 20160504
  2. VIEKIRAX [Suspect]
     Active Substance: OMBITASVIR\PARITAPREVIR\RITONAVIR
     Indication: HEPATIC CIRRHOSIS
     Dosage: 2-0-0
     Route: 048
     Dates: start: 20160414, end: 20160504
  3. EXVIERA [Suspect]
     Active Substance: DASABUVIR
     Indication: HEPATIC CIRRHOSIS
     Dosage: 1-0-1
     Route: 048
     Dates: start: 20160414, end: 20160504

REACTIONS (7)
  - Gastrointestinal haemorrhage [Unknown]
  - Child-Pugh-Turcotte score increased [Unknown]
  - Ascites [Unknown]
  - Anaemia [Unknown]
  - Melaena [Unknown]
  - Varices oesophageal [Unknown]
  - Hepatic failure [Unknown]

NARRATIVE: CASE EVENT DATE: 20160509
